FAERS Safety Report 4853606-X (Version None)
Quarter: 2005Q4

REPORT INFORMATION
  Report Type: 
  Country: None (occurrence: None)
  Receive Date: 20051212
  Receipt Date: 20051128
  Transmission Date: 20060501
  Serious: Yes (Other)
  Sender: FDA-Public Use
  Company Number: 2005145613

PATIENT
  Age: 39 Year
  Sex: Female

DRUGS (6)
  1. SOLU-MEDROL [Suspect]
     Indication: IMMUNOSUPPRESSION
     Dosage: INTRAVENOUS
     Route: 042
  2. TACROLIMUS (TACROLIMUS) [Suspect]
     Indication: IMMUNOSUPPRESSION
  3. MYCOPHENOLATE MOFETIL (MYCOPHENOLATE MOFETIL) [Suspect]
     Indication: IMMUNOSUPPRESSION
  4. BASILIXIMAB (BASILIXIMAB) [Suspect]
     Indication: IMMUNOSUPPRESSION
  5. CILOSTAZOL [Suspect]
     Indication: ILL-DEFINED DISORDER
     Dosage: ORAL
     Route: 048
  6. MINOCYCLINE HCL [Concomitant]

REACTIONS (9)
  - COLLAGEN DISORDER [None]
  - COMPLICATIONS OF TRANSPLANTED KIDNEY [None]
  - CYTOMEGALOVIRUS ANTIGEN POSITIVE [None]
  - HAEMODIALYSIS [None]
  - PNEUMONIA MYCOPLASMAL [None]
  - PNEUMONIA PRIMARY ATYPICAL [None]
  - PULMONARY ALVEOLAR HAEMORRHAGE [None]
  - RESPIRATORY TRACT INFECTION [None]
  - VITAMIN C DEFICIENCY [None]
